FAERS Safety Report 6263823-2 (Version None)
Quarter: 2009Q3

REPORT INFORMATION
  Report Type: 
  Country: None (occurrence: None)
  Receive Date: 20090701
  Receipt Date: 20090508
  Transmission Date: 20100115
  Serious: Yes (Other)
  Sender: FDA-Public Use
  Company Number: 188796USA

PATIENT
  Age: 24 Year
  Sex: Female

DRUGS (1)
  1. LAMOTRIGINE [Suspect]
     Indication: CONVULSION
     Dosage: (100 MG) , ORAL
     Route: 048
     Dates: start: 20081101, end: 20090306

REACTIONS (1)
  - CONVULSION [None]
